FAERS Safety Report 25317829 (Version 3)
Quarter: 2025Q4

REPORT INFORMATION
  Report Type: Spontaneous
  Country: US (occurrence: US)
  Receive Date: 20250515
  Receipt Date: 20251215
  Transmission Date: 20260117
  Serious: No
  Sender: BRISTOL-MYERS SQUIBB COMPANY
  Company Number: US-BRISTOL-MYERS SQUIBB COMPANY-2025-067384

PATIENT
  Age: 72 Year
  Sex: Male

DRUGS (2)
  1. LENALIDOMIDE [Suspect]
     Active Substance: LENALIDOMIDE
     Indication: Neoplasm malignant
     Dosage: TAKE 1 CAPSULE BY MOUTH EVERY DAY ON DAYS 1-21 , 3 WEEKS ON AND 1 WEEK OFF
     Route: 048
  2. LENALIDOMIDE [Suspect]
     Active Substance: LENALIDOMIDE
     Route: 048

REACTIONS (2)
  - Emergency care examination [Unknown]
  - Cellulitis [Unknown]

NARRATIVE: CASE EVENT DATE: 20250507
